FAERS Safety Report 6026678-7 (Version None)
Quarter: 2008Q4

REPORT INFORMATION
  Report Type: 
  Country: None (occurrence: None)
  Receive Date: 20081231
  Receipt Date: 20081218
  Transmission Date: 20090506
  Serious: Yes (Hospitalization)
  Sender: FDA-Public Use
  Company Number: KV200801267

PATIENT
  Age: 54 Year
  Sex: Male
  Weight: 78.9 kg

DRUGS (6)
  1. ISOSORBIDE MONONITRATE [Suspect]
     Indication: CHEST PAIN
     Dosage: 60 MG, QD, ORAL
     Route: 048
     Dates: end: 20081201
  2. PLAVIX [Concomitant]
  3. RAMIPRIL [Concomitant]
  4. METOPROLOL TARTRATE [Concomitant]
  5. PRAVASTINE [Concomitant]
  6. FISH OIL (FISH OIL) [Concomitant]

REACTIONS (4)
  - CHEST PAIN [None]
  - CORONARY ARTERY OCCLUSION [None]
  - DIZZINESS [None]
  - PRODUCT QUALITY ISSUE [None]
